FAERS Safety Report 10210210 (Version 1)
Quarter: 2014Q2

REPORT INFORMATION
  Report Type: Spontaneous
  Country: AR (occurrence: AR)
  Receive Date: 20140602
  Receipt Date: 20140602
  Transmission Date: 20141212
  Serious: Yes (Other)
  Sender: FDA-Public Use
  Company Number: PHHY2014AR065725

PATIENT
  Sex: Female

DRUGS (5)
  1. AFINITOR [Suspect]
     Indication: BREAST CANCER
     Dosage: 10 MG, DAILY
     Route: 048
     Dates: start: 20140321
  2. AFINITOR [Suspect]
     Dosage: 7.5 MG, UNK
     Route: 048
     Dates: start: 20140428
  3. AFINITOR [Suspect]
     Dosage: 2.5 MG, UNK
     Route: 048
     Dates: start: 20140509, end: 20140513
  4. ZOMETA [Concomitant]
  5. EXEMESTANE [Concomitant]

REACTIONS (4)
  - Candida infection [Unknown]
  - Bone pain [Unknown]
  - Fungal skin infection [Unknown]
  - Gait disturbance [Unknown]
